FAERS Safety Report 24324239 (Version 2)
Quarter: 2025Q2

REPORT INFORMATION
  Report Type: Spontaneous
  Country: MW (occurrence: MW)
  Receive Date: 20240916
  Receipt Date: 20250628
  Transmission Date: 20250717
  Serious: Yes (Hospitalization, Other)
  Sender: NOVITIUM PHARMA
  Company Number: MW-NOVITIUMPHARMA-2024MWNVP01849

PATIENT
  Age: 22 Year
  Sex: Female
  Weight: 33 kg

DRUGS (10)
  1. PYRAZINAMIDE [Suspect]
     Active Substance: PYRAZINAMIDE
     Indication: Pulmonary tuberculosis
  2. PYRAZINAMIDE [Suspect]
     Active Substance: PYRAZINAMIDE
  3. RIFAPENTINE [Concomitant]
     Active Substance: RIFAPENTINE
     Indication: Pulmonary tuberculosis
  4. RIFAPENTINE [Concomitant]
     Active Substance: RIFAPENTINE
  5. ISONIAZID [Concomitant]
     Active Substance: ISONIAZID
     Indication: Pulmonary tuberculosis
  6. ISONIAZID [Concomitant]
     Active Substance: ISONIAZID
  7. ETHAMBUTOL [Concomitant]
     Active Substance: ETHAMBUTOL HYDROCHLORIDE
     Indication: Pulmonary tuberculosis
  8. ETHAMBUTOL [Concomitant]
     Active Substance: ETHAMBUTOL HYDROCHLORIDE
  9. CLOFAZIMINE [Concomitant]
     Active Substance: CLOFAZIMINE
     Indication: Pulmonary tuberculosis
  10. CLOFAZIMINE [Concomitant]
     Active Substance: CLOFAZIMINE

REACTIONS (3)
  - Accidental overdose [Unknown]
  - Medication error [Unknown]
  - Hepatotoxicity [Recovered/Resolved]
